FAERS Safety Report 7530427-0 (Version None)
Quarter: 2011Q2

REPORT INFORMATION
  Report Type: 
  Country: None (occurrence: None)
  Receive Date: 20110607
  Receipt Date: 20110525
  Transmission Date: 20111010
  Serious: Yes (Other)
  Sender: FDA-Public Use
  Company Number: GB-CELGENEUS-167-21880-11053260

PATIENT

DRUGS (1)
  1. REVLIMID [Suspect]
     Route: 048

REACTIONS (1)
  - COLON CANCER [None]
